FAERS Safety Report 6825417-7 (Version None)
Quarter: 2010Q3

REPORT INFORMATION
  Report Type: 
  Country: None (occurrence: None)
  Receive Date: 20100708
  Receipt Date: 20061208
  Transmission Date: 20110219
  Serious: No
  Sender: FDA-Public Use
  Company Number: US-PFIZER INC-2006138826

PATIENT
  Age: 68 Year
  Sex: Female
  Weight: 57.15 kg

DRUGS (4)
  1. CHANTIX [Suspect]
     Indication: EX-TOBACCO USER
     Dates: start: 20061001, end: 20061201
  2. THYROID HORMONES [Concomitant]
  3. ACTONEL [Concomitant]
  4. SPIRIVA [Concomitant]

REACTIONS (5)
  - ABNORMAL DREAMS [None]
  - DRUG INEFFECTIVE [None]
  - INSOMNIA [None]
  - NIGHTMARE [None]
  - POOR QUALITY SLEEP [None]
